FAERS Safety Report 9542163 (Version 2)
Quarter: 2013Q4

REPORT INFORMATION
  Report Type: Spontaneous
  Country: CH (occurrence: CH)
  Receive Date: 20130923
  Receipt Date: 20131101
  Transmission Date: 20140711
  Serious: Yes (Hospitalization)
  Sender: FDA-Public Use
  Company Number: CH-ELI_LILLY_AND_COMPANY-CH201309004564

PATIENT
  Age: 59 Year
  Sex: Female
  Weight: 106.5 kg

DRUGS (12)
  1. CYMBALTA [Suspect]
     Indication: PRODUCT USED FOR UNKNOWN INDICATION
     Dosage: 60 MG, BID
     Route: 048
     Dates: start: 20130606
  2. TRANXILIUM [Suspect]
     Indication: PRODUCT USED FOR UNKNOWN INDICATION
     Dosage: 20 MG, QID
     Route: 048
     Dates: start: 20130606
  3. TRANXILIUM [Suspect]
     Dosage: 10 MG, EACH MORNING
     Route: 048
  4. TRANXILIUM [Suspect]
     Dosage: 10 MG, EACH AFTERNOON
     Route: 048
     Dates: start: 20130606
  5. TRANXILIUM [Suspect]
     Dosage: 5 MG, EACH EVENING
     Route: 048
     Dates: start: 20130606
  6. SEROQUEL XR [Suspect]
     Indication: PRODUCT USED FOR UNKNOWN INDICATION
     Dosage: 600 MG, QD (IN THE EVENING, FOR YEARS, EXACT DATE OF INITIATION OF THERAPY NOT KNOWN)
     Route: 048
  7. SEROQUEL XR [Suspect]
     Dosage: 800 MG, QD (800MG/D = 2X SEROQUEL 300MG + 1XSEROQUEL 200MG)
     Route: 048
     Dates: start: 20130606, end: 20130619
  8. SEROQUEL XR [Suspect]
     Dosage: 600 MG, EACH EVENING (2 TABS IN THE EVENING)
     Route: 048
     Dates: start: 20130619
  9. LYRICA [Suspect]
     Indication: PRODUCT USED FOR UNKNOWN INDICATION
     Dosage: 100 MG, BID
     Route: 048
     Dates: start: 20130606
  10. LYRICA [Suspect]
     Dosage: 75 MG, BID
     Route: 048
  11. TILUR [Concomitant]
     Indication: PRODUCT USED FOR UNKNOWN INDICATION
     Dosage: 60 MG, BID
     Route: 048
     Dates: end: 20130619
  12. FRAXIPARINE [Concomitant]
     Indication: PRODUCT USED FOR UNKNOWN INDICATION
     Dosage: .8 ML, QD
     Route: 058
     Dates: end: 20130619

REACTIONS (2)
  - Respiratory failure [Recovered/Resolved]
  - Stupor [Recovered/Resolved]
